FAERS Safety Report 20833305 (Version 1)
Quarter: 2022Q2

REPORT INFORMATION
  Report Type: Spontaneous
  Country: US (occurrence: None)
  Receive Date: 20220513
  Receipt Date: 20220513
  Transmission Date: 20220720
  Serious: No
  Sender: FDA-Public Use
  Company Number: None

PATIENT
  Age: 75 Year
  Sex: Female

DRUGS (1)
  1. CEQUA [Suspect]
     Active Substance: CYCLOSPORINE
     Dosage: FREQUENCY : DAILY;?
     Route: 047
     Dates: end: 20220401

REACTIONS (3)
  - Drug ineffective [None]
  - Instillation site pain [None]
  - Swelling of eyelid [None]

NARRATIVE: CASE EVENT DATE: 20220401
